FAERS Safety Report 17055075 (Version 1)
Quarter: 2019Q4

REPORT INFORMATION
  Report Type: Spontaneous
  Country: US (occurrence: US)
  Receive Date: 20191120
  Receipt Date: 20191120
  Transmission Date: 20200122
  Serious: No
  Sender: FDA-Public Use
  Company Number: US-SA-2019SA321834

PATIENT
  Age: 80 Year
  Sex: Female

DRUGS (1)
  1. PRALUENT [Suspect]
     Active Substance: ALIROCUMAB
     Dosage: 75 MG
     Dates: start: 20191106

REACTIONS (7)
  - Feeling abnormal [Unknown]
  - Fibromyalgia [Unknown]
  - Pain [Unknown]
  - Nausea [Unknown]
  - Feeling cold [Unknown]
  - Sinus headache [Unknown]
  - Bone pain [Unknown]

NARRATIVE: CASE EVENT DATE: 201911
